FAERS Safety Report 4528048-7 (Version None)
Quarter: 2004Q4

REPORT INFORMATION
  Report Type: 
  Country: None (occurrence: None)
  Receive Date: 20041123
  Receipt Date: 20040827
  Transmission Date: 20050328
  Serious: Yes (Other)
  Sender: FDA-Public Use
  Company Number: 2004031079

PATIENT
  Age: 66 Year
  Sex: Male
  Weight: 92.0802 kg

DRUGS (7)
  1. LIPITOR [Suspect]
     Indication: BLOOD CHOLESTEROL INCREASED
     Dosage: 10 MG (10MG, 1 IN 1 D), ORAL
     Route: 048
     Dates: start: 20020401
  2. RABEPRAZOLE SODIUM [Concomitant]
  3. ALENDRONATE SODIUM [Concomitant]
  4. GINKGO BILOBA (GINKGO BILOBA) [Concomitant]
  5. VITIS VINIFERA EXTRACT (VITIS VINIFERA EXTRACT) [Concomitant]
  6. LYCOPENE (LYCOPENE) [Concomitant]
  7. METOPROLOL TARTRATE [Concomitant]

REACTIONS (4)
  - ARTHRITIS [None]
  - BLOOD CREATINE PHOSPHOKINASE INCREASED [None]
  - RHABDOMYOLYSIS [None]
  - ROTATOR CUFF SYNDROME [None]
